FAERS Safety Report 16053725 (Version 2)
Quarter: 2020Q2

REPORT INFORMATION
  Report Type: Spontaneous
  Country: US (occurrence: US)
  Receive Date: 20190308
  Receipt Date: 20200513
  Transmission Date: 20200713
  Serious: Yes (Hospitalization, Other)
  Sender: FDA-Public Use
  Company Number: US-ASTRAZENECA-2019SE35917

PATIENT
  Age: 18910 Day
  Sex: Female

DRUGS (35)
  1. TRAZODONE [Concomitant]
     Active Substance: TRAZODONE HYDROCHLORIDE
  2. FUROSEMIDE. [Concomitant]
     Active Substance: FUROSEMIDE
  3. DIAZEPAM. [Concomitant]
     Active Substance: DIAZEPAM
  4. HYDROCODONE BITARTRATE AND ACETAMINOPHEN [Concomitant]
     Active Substance: ACETAMINOPHEN\HYDROCODONE BITARTRATE
  5. ZANAFLEX [Concomitant]
     Active Substance: TIZANIDINE HYDROCHLORIDE
  6. TRAZODONE [Concomitant]
     Active Substance: TRAZODONE HYDROCHLORIDE
  7. PULMICORT TURBUHALER [Concomitant]
     Active Substance: BUDESONIDE
  8. SULFASALAZINE. [Concomitant]
     Active Substance: SULFASALAZINE
  9. KOMBIGLYZE XR [Suspect]
     Active Substance: METFORMIN HYDROCHLORIDE\SAXAGLIPTIN HYDROCHLORIDE
     Indication: DIABETES MELLITUS
     Route: 048
     Dates: start: 2010
  10. XANAX [Concomitant]
     Active Substance: ALPRAZOLAM
  11. SYNTHROID [Concomitant]
     Active Substance: LEVOTHYROXINE SODIUM
  12. TURMERIC [Concomitant]
     Active Substance: HERBALS\TURMERIC
  13. BACLOFEN. [Concomitant]
     Active Substance: BACLOFEN
  14. CYMBALTA [Concomitant]
     Active Substance: DULOXETINE HYDROCHLORIDE
     Dates: start: 20171030
  15. ZYRTEC [Concomitant]
     Active Substance: CETIRIZINE HYDROCHLORIDE
  16. CYANOCOBALAMIN. [Concomitant]
     Active Substance: CYANOCOBALAMIN
  17. TIZANIDINE. [Concomitant]
     Active Substance: TIZANIDINE
  18. LINAGLIPTIN [Concomitant]
     Active Substance: LINAGLIPTIN
  19. IBUPROFEN. [Concomitant]
     Active Substance: IBUPROFEN
     Dates: start: 20180331
  20. DEXILANT [Concomitant]
     Active Substance: DEXLANSOPRAZOLE
  21. ZOMIG [Concomitant]
     Active Substance: ZOLMITRIPTAN
  22. LYRICA [Concomitant]
     Active Substance: PREGABALIN
     Dates: start: 20180331
  23. TESSALON [Concomitant]
     Active Substance: BENZONATATE
  24. FOLIC ACID. [Concomitant]
     Active Substance: FOLIC ACID
  25. OXYCODONE [Concomitant]
     Active Substance: OXYCODONE
  26. DULOXETINE. [Concomitant]
     Active Substance: DULOXETINE
  27. LISINOPRIL. [Concomitant]
     Active Substance: LISINOPRIL
     Dates: start: 20160831
  28. NYSTATIN. [Concomitant]
     Active Substance: NYSTATIN
  29. PREDNISONE. [Concomitant]
     Active Substance: PREDNISONE
  30. SAXAGLIPTIN [Concomitant]
     Active Substance: SAXAGLIPTIN
  31. KOMBIGLYZE XR [Suspect]
     Active Substance: METFORMIN HYDROCHLORIDE\SAXAGLIPTIN HYDROCHLORIDE
     Indication: DIABETES MELLITUS
     Dosage: 2.5 MG
     Route: 048
     Dates: start: 20120120, end: 20161026
  32. AMLODIPINE [Concomitant]
     Active Substance: AMLODIPINE BESYLATE
  33. MELOXICAM. [Concomitant]
     Active Substance: MELOXICAM
  34. METFORMIN [Concomitant]
     Active Substance: METFORMIN HYDROCHLORIDE
  35. TOCILIZUMAB. [Concomitant]
     Active Substance: TOCILIZUMAB

REACTIONS (4)
  - Chronic left ventricular failure [Unknown]
  - Cardiac failure congestive [Unknown]
  - Cardiac failure [Unknown]
  - Acute left ventricular failure [Unknown]

NARRATIVE: CASE EVENT DATE: 20160530
